FAERS Safety Report 4867121-0 (Version None)
Quarter: 2005Q4

REPORT INFORMATION
  Report Type: 
  Country: None (occurrence: None)
  Receive Date: 20051222
  Receipt Date: 20051213
  Transmission Date: 20060501
  Serious: Yes (Life-Threatening, Hospitalization)
  Sender: FDA-Public Use
  Company Number: DE-2005-023499

PATIENT
  Age: 54 Year
  Sex: Male
  Weight: 75 kg

DRUGS (3)
  1. BETASERON [Suspect]
     Indication: MULTIPLE SCLEROSIS
     Dosage: SUBCUTANEOUS
     Route: 058
     Dates: start: 19990101, end: 20050101
  2. DIBLOCIN PP (DOXAZOSIN MESILATE) [Concomitant]
  3. VOLTAREN [Concomitant]

REACTIONS (2)
  - INJECTION SITE CELLULITIS [None]
  - INJECTION SITE INFECTION [None]
